FAERS Safety Report 4650160-2 (Version None)
Quarter: 2005Q2

REPORT INFORMATION
  Report Type: 
  Country: None (occurrence: None)
  Receive Date: 20050502
  Receipt Date: 20040503
  Transmission Date: 20051028
  Serious: Yes (Hospitalization, Other)
  Sender: FDA-Public Use
  Company Number: PHRM2004FR01760

PATIENT
  Age: 75 Year
  Sex: Male

DRUGS (1)
  1. GLEEVEC [Suspect]
     Indication: GASTROINTESTINAL STROMAL TUMOUR
     Dosage: UNK, UNK
     Route: 048
     Dates: start: 20031001

REACTIONS (9)
  - BLADDER CANCER [None]
  - BLADDER POLYPECTOMY [None]
  - COLON CANCER [None]
  - DIARRHOEA [None]
  - HAEMATURIA [None]
  - LYMPHADENOPATHY [None]
  - POLYP [None]
  - PROSTATIC ADENOMA [None]
  - TRANSURETHRAL PROSTATECTOMY [None]
